FAERS Safety Report 15093344 (Version 1)
Quarter: 2018Q2

REPORT INFORMATION
  Report Type: Spontaneous
  Country: US (occurrence: US)
  Receive Date: 20180608
  Receipt Date: 20180608
  Transmission Date: 20180711
  Serious: No
  Sender: FDA-Public Use
  Company Number: None

PATIENT
  Age: 71 Year
  Sex: Male
  Weight: 107 kg

DRUGS (10)
  1. ATORVASTATIN [Concomitant]
     Active Substance: ATORVASTATIN
  2. TAMSULOSIN [Concomitant]
     Active Substance: TAMSULOSIN
  3. NEXAVAR [Suspect]
     Active Substance: SORAFENIB
     Dates: end: 20150113
  4. GLYCAZIDE [Concomitant]
  5. BISOPROLOL [Concomitant]
     Active Substance: BISOPROLOL
  6. METFORMIN [Concomitant]
     Active Substance: METFORMIN HYDROCHLORIDE
  7. VENLAFAXINE [Concomitant]
     Active Substance: VENLAFAXINE HYDROCHLORIDE
  8. LINAGLIPTINTIN [Concomitant]
  9. BACLOFEN. [Concomitant]
     Active Substance: BACLOFEN
  10. PANTALOC [Concomitant]

REACTIONS (1)
  - Pulmonary embolism [None]

NARRATIVE: CASE EVENT DATE: 20150113
